FAERS Safety Report 26214217 (Version 1)
Quarter: 2025Q4

REPORT INFORMATION
  Report Type: Spontaneous
  Country: UZ (occurrence: UZ)
  Receive Date: 20251230
  Receipt Date: 20251230
  Transmission Date: 20260118
  Serious: Yes (Death, Other)
  Sender: JOHNSON AND JOHNSON
  Company Number: UZ-JNJFOC-20251236277

PATIENT
  Sex: Female

DRUGS (1)
  1. BALVERSA [Suspect]
     Active Substance: ERDAFITINIB
     Indication: Malignant melanoma
     Route: 048

REACTIONS (3)
  - Death [Fatal]
  - Malignant melanoma [Unknown]
  - Off label use [Unknown]
